FAERS Safety Report 7783268-3 (Version None)
Quarter: 2011Q3

REPORT INFORMATION
  Report Type: 
  Country: None (occurrence: None)
  Receive Date: 20110928
  Receipt Date: 20110916
  Transmission Date: 20111222
  Serious: Yes (Hospitalization)
  Sender: FDA-Public Use
  Company Number: FR-SANOFI-AVENTIS-2011SA060383

PATIENT
  Age: 83 Year
  Sex: Female

DRUGS (5)
  1. ACETAMINOPHEN [Concomitant]
     Dates: start: 20110712
  2. GAVISCON [Concomitant]
     Dates: start: 20110712
  3. LASIX [Suspect]
     Indication: DYSPNOEA
     Dates: start: 20110712, end: 20110808
  4. PREVISCAN [Concomitant]
     Dates: start: 20110712
  5. CORDARONE [Concomitant]
     Dates: start: 20110401

REACTIONS (2)
  - RENAL FAILURE ACUTE [None]
  - HYPERKALAEMIA [None]
